FAERS Safety Report 16837386 (Version 1)
Quarter: 2019Q3

REPORT INFORMATION
  Report Type: Spontaneous
  Country: NL (occurrence: NL)
  Receive Date: 20190923
  Receipt Date: 20190923
  Transmission Date: 20191005
  Serious: Yes (Other)
  Sender: FDA-Public Use
  Company Number: NL-009507513-1909NLD007265

PATIENT
  Age: 67 Year
  Sex: Male
  Weight: 80 kg

DRUGS (8)
  1. SPIRIVA [Concomitant]
     Active Substance: TIOTROPIUM BROMIDE MONOHYDRATE
     Dosage: 1D1I
  2. FOSTER [Concomitant]
     Active Substance: BECLOMETHASONE\FORMOTEROL
     Dosage: 2-3D2I
  3. RIZATRIPTAN BENZOATE. [Suspect]
     Active Substance: RIZATRIPTAN BENZOATE
     Indication: MIGRAINE
     Dosage: IF NECESSARY 1 TIME DAILY 1 TABLET WITH HEADACHE, IF NECESSARY 1 EXTRA (MAX 2 TABLETS PER 24 HOURS)
     Route: 048
     Dates: start: 20181029, end: 20190305
  4. POLYETHYLENE GLYCOL [Concomitant]
     Active Substance: POLYETHYLENE GLYCOLS
     Dosage: 1X DAAGS 1/4 ZAKJE
  5. DULOXETINE HYDROCHLORIDE. [Concomitant]
     Active Substance: DULOXETINE HYDROCHLORIDE
     Dosage: 1D1C
  6. AVAMYS [Concomitant]
     Active Substance: FLUTICASONE FUROATE
     Dosage: 1D2I IBN
  7. OMEPRAZOLE. [Concomitant]
     Active Substance: OMEPRAZOLE
     Dosage: 1D1C
  8. METOPROLOL. [Concomitant]
     Active Substance: METOPROLOL
     Dosage: 1D1T 25 MG (NU 1X DAAGS 0,5 TABLET), MELT TABLET(FORMULATION)

REACTIONS (3)
  - Atheroembolism [Not Recovered/Not Resolved]
  - Petechiae [Not Recovered/Not Resolved]
  - Blue toe syndrome [Not Recovered/Not Resolved]

NARRATIVE: CASE EVENT DATE: 20190305
